FAERS Safety Report 5620499-2 (Version None)
Quarter: 2008Q1

REPORT INFORMATION
  Report Type: 
  Country: None (occurrence: None)
  Receive Date: 20080208
  Receipt Date: 20080204
  Transmission Date: 20080703
  Serious: Yes (Other)
  Sender: FDA-Public Use
  Company Number: IT-BOEHRINGER INGELHEIM GMBH, GERMANY-2008-BP-01670RO

PATIENT
  Age: 39 Year
  Sex: Female

DRUGS (6)
  1. PREDNISONE TAB [Suspect]
     Indication: PREMEDICATION
     Route: 048
  2. CHLORPHENIRAMINE MALEATE [Suspect]
     Indication: PREMEDICATION
     Route: 048
  3. MEPIVACAINE HCL [Suspect]
     Indication: LOCAL ANAESTHESIA
  4. METHYLPREDNISOLONE [Suspect]
     Indication: HYPERSENSITIVITY
     Route: 042
  5. ADRENALINE [Concomitant]
     Indication: HYPERSENSITIVITY
     Route: 030
  6. ANTIHISTAMINES [Concomitant]
     Indication: HYPERSENSITIVITY
     Route: 030

REACTIONS (2)
  - ANGIOEDEMA [None]
  - LARYNGEAL OEDEMA [None]
